FAERS Safety Report 5835237-8 (Version None)
Quarter: 2008Q3

REPORT INFORMATION
  Report Type: 
  Country: None (occurrence: None)
  Receive Date: 20080806
  Receipt Date: 20080629
  Transmission Date: 20090109
  Serious: Yes (Hospitalization)
  Sender: FDA-Public Use
  Company Number: TR-BAYER-200823706GPV

PATIENT
  Age: 74 Year
  Sex: Male

DRUGS (6)
  1. MOXIFLOXACIN HCL [Suspect]
     Indication: PNEUMONIA
     Route: 048
  2. WARFARIN SODIUM [Interacting]
     Indication: ANTICOAGULANT THERAPY
     Route: 048
  3. WARFARIN SODIUM [Interacting]
     Route: 065
  4. CRYSTALLIZED PENICILLIN [Concomitant]
     Indication: ALPHA HAEMOLYTIC STREPTOCOCCAL INFECTION
     Route: 065
  5. UNFRACTIONATED HEPARIN [Concomitant]
     Indication: ANTICOAGULANT THERAPY
     Route: 065
  6. PENICILLIN [Concomitant]
     Indication: ALPHA HAEMOLYTIC STREPTOCOCCAL INFECTION
     Route: 065

REACTIONS (3)
  - ECCHYMOSIS [None]
  - HAEMATURIA [None]
  - INTERNATIONAL NORMALISED RATIO INCREASED [None]
